FAERS Safety Report 10257231 (Version 1)
Quarter: 2014Q2

REPORT INFORMATION
  Report Type: Spontaneous
  Country: US (occurrence: None)
  Receive Date: 20140620
  Receipt Date: 20140620
  Transmission Date: 20141212
  Serious: Yes (Hospitalization)
  Sender: FDA-Public Use
  Company Number: AUR-APL-2014-06557

PATIENT
  Age: 59 Year
  Sex: Female

DRUGS (7)
  1. LEVOFLOXACIN (LEVOFLOXACIN) UNKNOWN, 1000MG [Suspect]
     Indication: INFECTION
     Dates: start: 200912
  2. SIMVASTATIN (SIMVASTATIN) [Concomitant]
  3. LEVOTHYROXINE (LEVOTHYROXINE) [Concomitant]
  4. ATENOLOL (ATENOLOL) [Concomitant]
  5. ASPIRIN (ACETYLSALICYLIC ACID) [Concomitant]
  6. TRAMADOL (TRAMADOL) [Concomitant]
  7. OMEPRAZOLE AND SODIUM BICARBONATE (OMEPRAZOLE, SODIUM BICARBONATE) [Concomitant]

REACTIONS (12)
  - Flushing [None]
  - Asthenia [None]
  - Paraesthesia [None]
  - Amnesia [None]
  - Flat affect [None]
  - Major depression [None]
  - Emotional disorder [None]
  - Tearfulness [None]
  - Disturbance in attention [None]
  - Poor quality sleep [None]
  - Frustration [None]
  - Dementia [None]
